FAERS Safety Report 9105329 (Version 1)
Quarter: 2013Q1

REPORT INFORMATION
  Report Type: Spontaneous
  Country: FR (occurrence: FR)
  Receive Date: 20130220
  Receipt Date: 20130220
  Transmission Date: 20140127
  Serious: Yes (Hospitalization, Other)
  Sender: FDA-Public Use
  Company Number: FR-BRISTOL-MYERS SQUIBB COMPANY-17379454

PATIENT
  Age: 70 Year
  Sex: Male

DRUGS (13)
  1. COUMADIN TABS 5 MG [Suspect]
     Indication: ATRIAL FIBRILLATION
     Route: 048
  2. TEMERIT [Concomitant]
  3. HEMIGOXINE NATIVELLE [Concomitant]
     Dosage: 125 UNITS NOS
  4. LASILIX [Concomitant]
  5. COVERSYL [Concomitant]
  6. CRESTOR [Concomitant]
  7. HUMALOG [Concomitant]
  8. STILNOX [Concomitant]
  9. LANTUS [Concomitant]
  10. XELEVIA [Concomitant]
  11. FEBUXOSTAT [Concomitant]
  12. SPIRIVA [Concomitant]
  13. ONBREZ [Concomitant]

REACTIONS (3)
  - International normalised ratio increased [Recovered/Resolved]
  - Overdose [Unknown]
  - Diverticulum intestinal [Unknown]
